FAERS Safety Report 22263885 (Version 1)
Quarter: 2023Q2

REPORT INFORMATION
  Report Type: Spontaneous
  Country: US (occurrence: None)
  Receive Date: 20230426
  Receipt Date: 20230426
  Transmission Date: 20230722
  Serious: Yes (Hospitalization)
  Sender: FDA-Public Use
  Company Number: None

PATIENT
  Sex: Male

DRUGS (5)
  1. BICALUTAMIDE [Suspect]
     Active Substance: BICALUTAMIDE
     Indication: Prostate cancer
     Route: 048
     Dates: start: 20230128
  2. AZITHROMYCIN TAB [Concomitant]
  3. FUROSEMIDE TAB [Concomitant]
  4. MECLIZINE TAB [Concomitant]
  5. POT CHLORIDE TAB [Concomitant]

REACTIONS (2)
  - Pneumonia [None]
  - Gait disturbance [None]
